FAERS Safety Report 8620192-8 (Version None)
Quarter: 2012Q3

REPORT INFORMATION
  Report Type: 
  Country: None (occurrence: None)
  Receive Date: 20120824
  Receipt Date: 20120820
  Transmission Date: 20120928
  Serious: Yes (Other)
  Sender: FDA-Public Use
  Company Number: PHHY2012DE072349

PATIENT
  Sex: Female

DRUGS (4)
  1. TAXILAN [Suspect]
  2. CLOZAPINE [Suspect]
  3. HALOPERIDOL LACTATE [Suspect]
  4. LEVOFLOXACIN [Suspect]

REACTIONS (2)
  - GASTROOESOPHAGEAL REFLUX DISEASE [None]
  - HAEMORRHAGIC ANAEMIA [None]
